FAERS Safety Report 8624277-1 (Version None)
Quarter: 2012Q3

REPORT INFORMATION
  Report Type: 
  Country: None (occurrence: None)
  Receive Date: 20120827
  Receipt Date: 20120810
  Transmission Date: 20120928
  Serious: No
  Sender: FDA-Public Use
  Company Number: US-ASTRAZENECA-2012SE48167

PATIENT
  Age: 50 Year
  Sex: Female

DRUGS (3)
  1. NEXIUM [Suspect]
     Route: 048
  2. ZOMIG [Suspect]
     Indication: CLUSTER HEADACHE
     Route: 048
  3. ZOMIG [Suspect]
     Indication: MIGRAINE
     Route: 048

REACTIONS (9)
  - VIRAL INFECTION [None]
  - GASTROENTERITIS VIRAL [None]
  - BLOOD PRESSURE ABNORMAL [None]
  - MALAISE [None]
  - MIGRAINE [None]
  - NAUSEA [None]
  - MEMORY IMPAIRMENT [None]
  - HAEMOPTYSIS [None]
  - DRUG DOSE OMISSION [None]
